FAERS Safety Report 6620622-7 (Version None)
Quarter: 2010Q1

REPORT INFORMATION
  Report Type: 
  Country: None (occurrence: None)
  Receive Date: 20100309
  Receipt Date: 20100224
  Transmission Date: 20100710
  Serious: Yes (Other)
  Sender: FDA-Public Use
  Company Number: CA-PFIZER INC-2010025184

PATIENT
  Age: 42 Year
  Sex: Female

DRUGS (7)
  1. NEURONTIN [Suspect]
     Dosage: 1200 MG, 4X/DAY
     Dates: start: 20030101
  2. ZANAFLEX [Concomitant]
     Dosage: UNK
  3. OXYCODONE HCL [Concomitant]
     Dosage: UNK
  4. CODEINE CONTIN [Concomitant]
     Dosage: UNK
  5. ATIVAN [Concomitant]
     Dosage: UNK
  6. METFORMIN [Concomitant]
     Indication: DIABETES MELLITUS
     Dosage: UNK
  7. BISACODYL [Concomitant]
     Dosage: UNK

REACTIONS (2)
  - SWOLLEN TONGUE [None]
  - TOOTH MALFORMATION [None]
